FAERS Safety Report 26113934 (Version 1)
Quarter: 2025Q4

REPORT INFORMATION
  Report Type: Spontaneous
  Country: US (occurrence: US)
  Receive Date: 20251202
  Receipt Date: 20251202
  Transmission Date: 20260117
  Serious: Yes (Other)
  Sender: MYLAN
  Company Number: US-MYLANLABS-2025M1102936

PATIENT
  Age: 51 Year
  Sex: Male

DRUGS (1)
  1. METHIMAZOLE [Suspect]
     Active Substance: METHIMAZOLE
     Indication: Endocrine ophthalmopathy
     Dosage: UNK

REACTIONS (1)
  - Drug ineffective [Unknown]
